FAERS Safety Report 9434418 (Version 2)
Quarter: 2013Q3

REPORT INFORMATION
  Report Type: Spontaneous
  Country: DE (occurrence: DE)
  Receive Date: 20130801
  Receipt Date: 20130822
  Transmission Date: 20140515
  Serious: Yes (Hospitalization)
  Sender: FDA-Public Use
  Company Number: DE-JNJFOC-20130708211

PATIENT
  Sex: Male
  Weight: 66 kg

DRUGS (4)
  1. TOPAMAX [Suspect]
     Indication: ACCIDENTAL EXPOSURE TO PRODUCT
     Route: 048
     Dates: start: 20130711, end: 20130711
  2. QUETIAPINE [Suspect]
     Indication: ACCIDENTAL EXPOSURE TO PRODUCT
     Route: 048
     Dates: start: 20130711, end: 20130711
  3. LAMOTRIGINE [Suspect]
     Indication: ACCIDENTAL EXPOSURE TO PRODUCT
     Route: 048
     Dates: start: 20130711, end: 20130711
  4. ORFIRIL [Suspect]
     Indication: ACCIDENTAL EXPOSURE TO PRODUCT
     Route: 048
     Dates: start: 20130711, end: 20130711

REACTIONS (1)
  - Accidental exposure to product [Recovered/Resolved]
